FAERS Safety Report 8885943 (Version 3)
Quarter: 2012Q4

REPORT INFORMATION
  Report Type: 
  Country: CA (occurrence: CA)
  Receive Date: 20121105
  Receipt Date: 20121213
  Transmission Date: 20130627
  Serious: Yes (Other)
  Sender: FDA-Public Use
  Company Number: CA-ROCHE-1151633

PATIENT
  Age: 36 Year
  Sex: Female

DRUGS (3)
  1. XOLAIR [Suspect]
     Indication: ASTHMA
     Route: 058
     Dates: start: 20090422
  2. XOLAIR [Suspect]
     Route: 058
     Dates: start: 20121022
  3. DILTIAZEM [Concomitant]

REACTIONS (6)
  - Chest discomfort [Recovered/Resolved]
  - Nausea [Recovered/Resolved]
  - Dizziness [Recovered/Resolved]
  - Headache [Recovering/Resolving]
  - Pain [Unknown]
  - Hypertension [Unknown]
